FAERS Safety Report 6411107-1 (Version None)
Quarter: 2009Q4

REPORT INFORMATION
  Report Type: 
  Country: None (occurrence: None)
  Receive Date: 20091014
  Receipt Date: 20091001
  Transmission Date: 20100525
  Serious: Yes (Death, Other)
  Sender: FDA-Public Use
  Company Number: THYM-1001226

PATIENT
  Age: 62 Year
  Sex: Male
  Weight: 60 kg

DRUGS (2)
  1. THYMOGLOBULIN [Suspect]
     Indication: ACUTE GRAFT VERSUS HOST DISEASE
  2. THYMOGLOBULIN [Suspect]
     Indication: STEM CELL TRANSPLANT

REACTIONS (2)
  - ACUTE GRAFT VERSUS HOST DISEASE [None]
  - DISEASE PROGRESSION [None]
